FAERS Safety Report 14095472 (Version 1)
Quarter: 2017Q4

REPORT INFORMATION
  Report Type: Spontaneous
  Country: CN (occurrence: CN)
  Receive Date: 20171016
  Receipt Date: 20171016
  Transmission Date: 20180321
  Serious: Yes (Other)
  Sender: FDA-Public Use
  Company Number: CN-MYLANLABS-2017M1063859

PATIENT
  Age: 25 Year
  Sex: Female

DRUGS (5)
  1. IMIPENEM [Suspect]
     Active Substance: IMIPENEM
     Indication: LUNG INFECTION
     Route: 065
  2. FLUCONAZOLE. [Suspect]
     Active Substance: FLUCONAZOLE
     Indication: LUNG INFECTION
     Route: 065
  3. CYTARABINE. [Suspect]
     Active Substance: CYTARABINE
     Indication: ACUTE MYELOID LEUKAEMIA
     Dosage: 150 MG/M2/DAY ON DAYS 1-7
     Route: 065
  4. DAUNORUBICIN [Suspect]
     Active Substance: DAUNORUBICIN
     Indication: ACUTE MYELOID LEUKAEMIA
     Dosage: 40 MG/M2/DAY ON DAYS 1-3
     Route: 065
  5. VANCOMYCIN [Suspect]
     Active Substance: VANCOMYCIN
     Indication: LUNG INFECTION
     Route: 065

REACTIONS (3)
  - Normal newborn [Recovered/Resolved]
  - Bone marrow failure [Unknown]
  - Maternal exposure during pregnancy [Recovered/Resolved]
